FAERS Safety Report 12573215 (Version 1)
Quarter: 2016Q3

REPORT INFORMATION
  Report Type: Spontaneous
  Country: US (occurrence: US)
  Receive Date: 20160720
  Receipt Date: 20160720
  Transmission Date: 20161109
  Serious: No
  Sender: FDA-Public Use
  Company Number: US-TEVA-617648USA

PATIENT
  Sex: Female
  Weight: 68.1 kg

DRUGS (2)
  1. TRIAMCINOLONE [Suspect]
     Active Substance: TRIAMCINOLONE
     Indication: RHINITIS PERENNIAL
     Route: 045
     Dates: start: 20151207, end: 20151208
  2. TRIAMCINOLONE [Suspect]
     Active Substance: TRIAMCINOLONE
     Indication: SEASONAL ALLERGY

REACTIONS (3)
  - Paraesthesia oral [Unknown]
  - Chapped lips [Unknown]
  - Lip swelling [Unknown]
